FAERS Safety Report 5472708-0 (Version None)
Quarter: 2007Q4

REPORT INFORMATION
  Report Type: 
  Country: None (occurrence: None)
  Receive Date: 20071001
  Receipt Date: 20061220
  Transmission Date: 20080405
  Serious: No
  Sender: FDA-Public Use
  Company Number: US-ASTRAZENECA-2006UW20862

PATIENT
  Age: 70 Year
  Sex: Female
  Weight: 83.9 kg

DRUGS (8)
  1. ARIMIDEX [Suspect]
     Indication: BREAST CANCER FEMALE
     Route: 048
     Dates: start: 20060901
  2. TAMOXIFEN CITRATE [Suspect]
     Indication: BREAST CANCER FEMALE
     Route: 048
  3. CAPTOPRIL [Concomitant]
  4. HYTRIN [Concomitant]
  5. INSULIN [Concomitant]
  6. METFORMIN HCL [Concomitant]
  7. ATENOLOL [Concomitant]
  8. LIPITOR [Concomitant]

REACTIONS (3)
  - BLOOD GLUCOSE DECREASED [None]
  - DEPRESSION [None]
  - DYSPHONIA [None]
